FAERS Safety Report 13917777 (Version 1)
Quarter: 2017Q3

REPORT INFORMATION
  Report Type: Report from Study
  Country: CA (occurrence: CA)
  Receive Date: 20170829
  Receipt Date: 20170829
  Transmission Date: 20171127
  Serious: Yes (Life-Threatening, Hospitalization)
  Sender: FDA-Public Use
  Company Number: CA-JNJFOC-20170823595

PATIENT
  Age: 75 Year
  Sex: Male
  Weight: 77 kg

DRUGS (1)
  1. DARZALEX [Suspect]
     Active Substance: DARATUMUMAB
     Indication: PLASMA CELL MYELOMA
     Dosage: STRENGTH = 400 MG
     Route: 042
     Dates: start: 20161208, end: 20170809

REACTIONS (6)
  - Cellulitis [Recovering/Resolving]
  - Panic disorder [Unknown]
  - Heart rate increased [Recovering/Resolving]
  - Pulmonary oedema [Unknown]
  - Pericardial effusion [Unknown]
  - Cardiac disorder [Recovering/Resolving]

NARRATIVE: CASE EVENT DATE: 20170809
